FAERS Safety Report 7544797-0 (Version None)
Quarter: 2011Q2

REPORT INFORMATION
  Report Type: 
  Country: None (occurrence: None)
  Receive Date: 20110614
  Receipt Date: 20110524
  Transmission Date: 20111010
  Serious: Yes (Other)
  Sender: FDA-Public Use
  Company Number: US-BAYER-2011-030519

PATIENT
  Sex: Female
  Weight: 78.912 kg

DRUGS (31)
  1. OPTIMARK [Suspect]
     Indication: NUCLEAR MAGNETIC RESONANCE IMAGING
  2. FERROUS SULFATE TAB [Concomitant]
  3. METOPROLOL SUCCINATE [Concomitant]
  4. FUROSEMIDE [Concomitant]
  5. RENAGEL [Concomitant]
  6. OMEPRAZOLE [Concomitant]
  7. EPOGEN [Concomitant]
  8. OMNISCAN [Suspect]
     Indication: NUCLEAR MAGNETIC RESONANCE IMAGING
     Dosage: 40 ML, ONCE
     Route: 042
     Dates: start: 20070206, end: 20070206
  9. LANTUS [Concomitant]
  10. GADOLINIUM IN UNSPECIFIED DRUG [Suspect]
     Dosage: UNK
     Dates: start: 20070301, end: 20070301
  11. MAGNEVIST [Suspect]
     Indication: ARTERIOGRAM
  12. OMNISCAN [Suspect]
     Indication: ARTERIOGRAM
  13. OPTIMARK [Suspect]
     Indication: ANGIOGRAM
  14. LEXAPRO [Concomitant]
  15. MIDODRINE HYDROCHLORIDE [Concomitant]
  16. PLETAL [Concomitant]
  17. VENOFER [Concomitant]
  18. MULTIHANCE [Suspect]
     Dosage: 17 ML, ONCE
     Route: 042
     Dates: start: 20091119, end: 20091119
  19. PRAVACHOL [Concomitant]
  20. LISINOPRIL [Concomitant]
  21. ARANESP [Concomitant]
  22. GADOLINIUM IN UNSPECIFIED DRUG [Suspect]
     Dosage: UNK
     Dates: start: 20060303, end: 20060303
  23. MAGNEVIST [Suspect]
     Indication: NUCLEAR MAGNETIC RESONANCE IMAGING
  24. OMNISCAN [Suspect]
     Indication: ANGIOGRAM
  25. OPTIMARK [Suspect]
     Indication: ARTERIOGRAM
  26. ASPIRIN [Concomitant]
  27. COUMADIN [Concomitant]
  28. RENVELA [Concomitant]
  29. MULTIHANCE [Suspect]
     Dosage: 15 ML, ONCE
     Route: 042
     Dates: start: 20080730, end: 20080730
  30. MAGNEVIST [Suspect]
     Indication: ANGIOGRAM
  31. PLAQUENIL [Concomitant]

REACTIONS (24)
  - SKIN HYPERTROPHY [None]
  - MUSCULAR WEAKNESS [None]
  - MUSCULOSKELETAL STIFFNESS [None]
  - OEDEMA [None]
  - SKIN PLAQUE [None]
  - DISCOMFORT [None]
  - ANXIETY [None]
  - PAIN [None]
  - SKIN SWELLING [None]
  - JOINT RANGE OF MOTION DECREASED [None]
  - SKIN HYPERPIGMENTATION [None]
  - FRUSTRATION [None]
  - ALOPECIA [None]
  - SKIN DISCOLOURATION [None]
  - SKIN INDURATION [None]
  - SKIN LESION [None]
  - SKIN TIGHTNESS [None]
  - ABASIA [None]
  - NEPHROGENIC SYSTEMIC FIBROSIS [None]
  - EMOTIONAL DISTRESS [None]
  - EXTREMITY CONTRACTURE [None]
  - WHEELCHAIR USER [None]
  - DYSSTASIA [None]
  - ANHEDONIA [None]
